FAERS Safety Report 25661138 (Version 2)
Quarter: 2025Q3

REPORT INFORMATION
  Report Type: Spontaneous
  Country: US (occurrence: US)
  Receive Date: 20250808
  Receipt Date: 20250826
  Transmission Date: 20251020
  Serious: Yes (Hospitalization, Other)
  Sender: SANOFI AVENTIS
  Company Number: US-SA-2025SA231724

PATIENT
  Age: 76 Year
  Sex: Female
  Weight: 102.05 kg

DRUGS (6)
  1. DUPIXENT [Suspect]
     Active Substance: DUPILUMAB
     Indication: Illness
     Dosage: 300 MG, QOW
     Route: 058
  2. OXYCODONE [Suspect]
     Active Substance: OXYCODONE
  3. CIPROFLOXACIN [Suspect]
     Active Substance: CIPROFLOXACIN
  4. NICKEL [Suspect]
     Active Substance: NICKEL
  5. HYDROCODONE [Suspect]
     Active Substance: HYDROCODONE
  6. CEPHALEXIN [Suspect]
     Active Substance: CEPHALEXIN

REACTIONS (14)
  - Hallucination, visual [Recovered/Resolved]
  - Hypertensive urgency [Recovered/Resolved]
  - Hypertension [Unknown]
  - Giant cell arteritis [Recovered/Resolved]
  - Tension headache [Recovered/Resolved]
  - Drug dependence [Unknown]
  - Dyspnoea [Unknown]
  - Throat irritation [Unknown]
  - Gout [Unknown]
  - Hot flush [Unknown]
  - Oedema [Unknown]
  - Erythema [Unknown]
  - Pruritus [Unknown]
  - Rash [Unknown]

NARRATIVE: CASE EVENT DATE: 20200101
